FAERS Safety Report 19289678 (Version 4)
Quarter: 2021Q3

REPORT INFORMATION
  Report Type: Spontaneous
  Country: US (occurrence: US)
  Receive Date: 20210522
  Receipt Date: 20210919
  Transmission Date: 20211014
  Serious: Yes (Other)
  Sender: FDA-Public Use
  Company Number: NVSC2021US109881

PATIENT
  Sex: Female

DRUGS (1)
  1. KESIMPTA [Suspect]
     Active Substance: OFATUMUMAB
     Indication: MULTIPLE SCLEROSIS
     Route: 065

REACTIONS (9)
  - Contusion [Unknown]
  - Fatigue [Unknown]
  - Hypertension [Unknown]
  - Dizziness [Unknown]
  - Loss of consciousness [Unknown]
  - Headache [Unknown]
  - Hypotension [Unknown]
  - Fall [Unknown]
  - Pain [Unknown]
